FAERS Safety Report 12954493 (Version 2)
Quarter: 2017Q1

REPORT INFORMATION
  Report Type: Spontaneous
  Country: US (occurrence: US)
  Receive Date: 20161118
  Receipt Date: 20170116
  Transmission Date: 20170428
  Serious: Yes (Other)
  Sender: FDA-Public Use
  Company Number: PHEH2016US029789

PATIENT
  Age: 83 Year
  Sex: Male
  Weight: 175 kg

DRUGS (2)
  1. ENTRESTO [Suspect]
     Active Substance: SACUBITRIL\VALSARTAN
     Dosage: 200 MG (97/103MG), BID
     Route: 048
     Dates: start: 20160907, end: 20161031
  2. ENTRESTO [Suspect]
     Active Substance: SACUBITRIL\VALSARTAN
     Indication: CARDIAC FAILURE
     Dosage: 50 MG (24/26MG), UNK
     Route: 048
     Dates: start: 20160628, end: 20160907

REACTIONS (4)
  - Renal impairment [Not Recovered/Not Resolved]
  - Contraindicated product administered [Unknown]
  - Oedema peripheral [Unknown]
  - Weight increased [Not Recovered/Not Resolved]

NARRATIVE: CASE EVENT DATE: 20160907
